FAERS Safety Report 6878104-3 (Version None)
Quarter: 2010Q2

REPORT INFORMATION
  Report Type: 
  Country: None (occurrence: None)
  Receive Date: 20100616
  Receipt Date: 20100224
  Transmission Date: 20101027
  Serious: No
  Sender: FDA-Public Use
  Company Number: DSA_42681_2010

PATIENT
  Sex: Male

DRUGS (15)
  1. XENAZINE [Suspect]
     Indication: TARDIVE DYSKINESIA
     Dosage: 12.5 MG QD ORAL
     Route: 048
     Dates: start: 20100206, end: 20100201
  2. IMDUR [Concomitant]
  3. LOPID [Concomitant]
  4. LOPRESSOR [Concomitant]
  5. FOLIC ACID [Concomitant]
  6. LASIX [Concomitant]
  7. ASPIRIN [Concomitant]
  8. ARTANE [Concomitant]
  9. PRINIVIL [Concomitant]
  10. ZETIA [Concomitant]
  11. SYNTHROID [Concomitant]
  12. RESTORIL [Concomitant]
  13. FLOMAX [Concomitant]
  14. SAW PALMETTO [Concomitant]
  15. MULTIPLE VITAMINS [Concomitant]

REACTIONS (1)
  - FATIGUE [None]
